FAERS Safety Report 13424722 (Version 3)
Quarter: 2017Q3

REPORT INFORMATION
  Report Type: Report from Study
  Country: IT (occurrence: IT)
  Receive Date: 20170410
  Receipt Date: 20170811
  Transmission Date: 20171127
  Serious: Yes (Death, Life-Threatening, Hospitalization)
  Sender: FDA-Public Use
  Company Number: IT-CELGENEUS-ITA-20170402231

PATIENT
  Age: 72 Year
  Sex: Male
  Weight: 92 kg

DRUGS (15)
  1. LANSOPRAZOLO [Concomitant]
     Active Substance: LANSOPRAZOLE
     Indication: GASTRITIS PROPHYLAXIS
     Dosage: 30 MILLIGRAM
     Route: 048
     Dates: start: 201502
  2. DEXAMETHASONE. [Concomitant]
     Active Substance: DEXAMETHASONE
     Indication: PREMEDICATION
     Route: 041
     Dates: start: 20170310
  3. GIANT [Concomitant]
     Active Substance: AMLODIPINE BESYLATE\OLMESARTAN MEDOXOMIL
     Indication: HYPERTENSION
     Dosage: 40/5MG
     Route: 048
     Dates: start: 201602
  4. PALONOSETRON [Concomitant]
     Active Substance: PALONOSETRON
     Indication: PREMEDICATION
     Route: 041
     Dates: start: 20170310
  5. LOPERAMIDE HYDROCHLORIDE. [Concomitant]
     Active Substance: LOPERAMIDE HYDROCHLORIDE
     Indication: DIARRHOEA
     Route: 048
     Dates: start: 20170321
  6. LANTUS [Concomitant]
     Active Substance: INSULIN GLARGINE
     Indication: DIABETES MELLITUS
     Dosage: 24 IU (INTERNATIONAL UNIT)
     Route: 048
     Dates: start: 2014
  7. FOSAPREPITANT [Concomitant]
     Active Substance: FOSAPREPITANT
     Indication: PREMEDICATION
     Route: 041
     Dates: start: 20170310
  8. ALIZAPRIDE [Concomitant]
     Active Substance: ALIZAPRIDE
     Indication: PREMEDICATION
     Route: 041
     Dates: start: 20170310
  9. ABRAXANE [Suspect]
     Active Substance: PACLITAXEL
     Dosage: 10.7143 MILLIGRAM/SQ. METER
     Route: 041
     Dates: start: 20170331, end: 20170402
  10. CARBOPLATIN. [Suspect]
     Active Substance: CARBOPLATIN
     Dosage: AUC 4.5MG/ML/DAY
     Route: 041
     Dates: start: 20170331, end: 20170402
  11. CARDIOASPIRINA [Concomitant]
     Active Substance: ASPIRIN
     Indication: ATRIAL FIBRILLATION
     Dosage: 100 MILLIGRAM
     Route: 048
     Dates: start: 201609
  12. APIDRA [Concomitant]
     Active Substance: INSULIN GLULISINE
     Indication: DIABETES MELLITUS
     Route: 048
     Dates: start: 2014
  13. RANITIDINE. [Concomitant]
     Active Substance: RANITIDINE
     Indication: PREMEDICATION
     Route: 041
     Dates: start: 20170310
  14. ABRAXANE [Suspect]
     Active Substance: PACLITAXEL
     Indication: NON-SMALL CELL LUNG CANCER
     Dosage: 100 MILLIGRAM/SQ. METER
     Route: 041
     Dates: start: 20170310, end: 20170317
  15. CARBOPLATIN. [Suspect]
     Active Substance: CARBOPLATIN
     Indication: NON-SMALL CELL LUNG CANCER
     Dosage: AUC 6MG/ML/DAY
     Route: 041
     Dates: start: 20170310, end: 20170317

REACTIONS (1)
  - Pneumonitis [Fatal]

NARRATIVE: CASE EVENT DATE: 20170402
